FAERS Safety Report 8271199-4 (Version None)
Quarter: 2012Q2

REPORT INFORMATION
  Report Type: 
  Country: None (occurrence: None)
  Receive Date: 20120410
  Receipt Date: 20120229
  Transmission Date: 20120825
  Serious: Yes (Other)
  Sender: FDA-Public Use
  Company Number: US-ROCHE-762819

PATIENT
  Sex: Male
  Weight: 111.6 kg

DRUGS (6)
  1. ACCUTANE [Suspect]
     Route: 048
     Dates: start: 20050211, end: 20051001
  2. HYZAAR [Concomitant]
  3. ACCUTANE [Suspect]
     Indication: ACNE
     Route: 048
  4. ACCUTANE [Suspect]
     Route: 048
     Dates: start: 20040630, end: 20041215
  5. LOSARTAN POTASSIUM [Concomitant]
  6. LISINOPRIL [Concomitant]

REACTIONS (9)
  - HAEMORRHOIDS [None]
  - EPISTAXIS [None]
  - BLOOD TRIGLYCERIDES INCREASED [None]
  - CROHN'S DISEASE [None]
  - INFLAMMATORY BOWEL DISEASE [None]
  - COLONIC POLYP [None]
  - DRY SKIN [None]
  - COUGH [None]
  - ASPARTATE AMINOTRANSFERASE INCREASED [None]
